FAERS Safety Report 12068243 (Version 1)
Quarter: 2016Q1

REPORT INFORMATION
  Report Type: Spontaneous
  Country: US (occurrence: US)
  Receive Date: 20160211
  Receipt Date: 20160211
  Transmission Date: 20160526
  Serious: No
  Sender: FDA-Public Use
  Company Number: US-SMITH AND NEPHEW, INC-2015SMT00473

PATIENT
  Age: 83 Year
  Sex: Female
  Weight: 43.84 kg

DRUGS (8)
  1. BABY ASPIRIN [Concomitant]
     Active Substance: ASPIRIN
  2. VITAMIN D3 [Concomitant]
     Active Substance: CHOLECALCIFEROL
  3. ATORVASTATIN [Concomitant]
     Active Substance: ATORVASTATIN
  4. UNSPECIFIED FIBER PILL [Concomitant]
     Dosage: UNK, 2X/DAY
  5. MELOXICAM. [Concomitant]
     Active Substance: MELOXICAM
     Dosage: UNK, 1X/DAY
  6. NAMENDA [Concomitant]
     Active Substance: MEMANTINE HYDROCHLORIDE
     Dosage: 28 MG, 1X/DAY
  7. LOPERAMIDE [Concomitant]
     Active Substance: LOPERAMIDE
  8. REGRANEX [Suspect]
     Active Substance: BECAPLERMIN
     Indication: SKIN ULCER
     Dosage: QUARTER-INCH OF PRODUCT, 1X/DAY
     Route: 061
     Dates: start: 20151022

REACTIONS (2)
  - Off label use [Not Recovered/Not Resolved]
  - Application site pain [Not Recovered/Not Resolved]

NARRATIVE: CASE EVENT DATE: 201510
